FAERS Safety Report 7785698-2 (Version None)
Quarter: 2011Q3

REPORT INFORMATION
  Report Type: 
  Country: None (occurrence: None)
  Receive Date: 20110929
  Receipt Date: 20110127
  Transmission Date: 20111222
  Serious: No
  Sender: FDA-Public Use
  Company Number: US-GLAXOSMITHKLINE-A0909834A

PATIENT
  Age: 8 Year
  Sex: Male

DRUGS (2)
  1. MULTI VITAMINS WITH FLOURIDE [Concomitant]
  2. LAMOTRIGINE [Suspect]
     Indication: EPILEPSY
     Dosage: 35.5MG TWICE PER DAY
     Route: 048
     Dates: start: 20100101

REACTIONS (2)
  - PSYCHOMOTOR HYPERACTIVITY [None]
  - LOGORRHOEA [None]
